FAERS Safety Report 9333895 (Version 1)
Quarter: 2013Q2

REPORT INFORMATION
  Report Type: Spontaneous
  Country: US (occurrence: US)
  Receive Date: 20130606
  Receipt Date: 20130606
  Transmission Date: 20140414
  Serious: No
  Sender: FDA-Public Use
  Company Number: US-AMGEN-USASP2013003109

PATIENT
  Age: 78 Year
  Sex: Female

DRUGS (2)
  1. PROLIA [Suspect]
     Indication: OSTEOPOROSIS POSTMENOPAUSAL
     Dosage: UNK
     Dates: start: 20120921
  2. CALCIUM WITH VITAMIN D             /00944201/ [Concomitant]

REACTIONS (4)
  - Dizziness [Not Recovered/Not Resolved]
  - Cystitis [Recovered/Resolved]
  - Back pain [Unknown]
  - Constipation [Unknown]
